FAERS Safety Report 4646576-0 (Version None)
Quarter: 2005Q2

REPORT INFORMATION
  Report Type: 
  Country: None (occurrence: None)
  Receive Date: 20050427
  Receipt Date: 20041220
  Transmission Date: 20051028
  Serious: No
  Sender: FDA-Public Use
  Company Number: US-GLAXOSMITHKLINE-A0538020A

PATIENT
  Age: 84 Year
  Sex: Female

DRUGS (9)
  1. FLOVENT [Suspect]
     Indication: ASTHMA
     Dosage: 2PUFF TWICE PER DAY
     Route: 055
  2. COMBIVENT [Concomitant]
  3. ACTONEL [Concomitant]
  4. PROTONIX [Concomitant]
  5. DETROL [Concomitant]
  6. LIPITOR [Concomitant]
  7. TYLENOL [Concomitant]
  8. VITAMIN E [Concomitant]
  9. CALTRATE [Concomitant]

REACTIONS (2)
  - DYSPHONIA [None]
  - PHARMACEUTICAL PRODUCT COMPLAINT [None]
